FAERS Safety Report 17881033 (Version 2)
Quarter: 2021Q3

REPORT INFORMATION
  Report Type: Spontaneous
  Country: US (occurrence: US)
  Receive Date: 20200610
  Receipt Date: 20210819
  Transmission Date: 20211014
  Serious: Yes (Death, Other)
  Sender: FDA-Public Use
  Company Number: US-SA-2020SA145468

PATIENT
  Age: 81 Year
  Sex: Female

DRUGS (1)
  1. ZANTAC [Suspect]
     Active Substance: RANITIDINE HYDROCHLORIDE
     Indication: GASTROOESOPHAGEAL REFLUX DISEASE
     Dosage: 150 MG, FREQUENCY: OTHER
     Dates: start: 200901, end: 201910

REACTIONS (2)
  - Leukaemia [Fatal]
  - Haematological malignancy [Unknown]

NARRATIVE: CASE EVENT DATE: 201912
